FAERS Safety Report 9531612 (Version 1)
Quarter: 2013Q3

REPORT INFORMATION
  Report Type: Spontaneous
  Country: US (occurrence: None)
  Receive Date: 20130917
  Receipt Date: 20130917
  Transmission Date: 20140515
  Serious: No
  Sender: FDA-Public Use
  Company Number: None

PATIENT
  Age: 71 Year
  Sex: Female

DRUGS (1)
  1. FORTEO [Suspect]
     Dosage: 20 MCG DAILY SQ
     Route: 058
     Dates: start: 20130626, end: 20130629

REACTIONS (4)
  - Migraine [None]
  - Retching [None]
  - Vomiting [None]
  - Diarrhoea [None]
